FAERS Safety Report 9627677 (Version 1)
Quarter: 2013Q4

REPORT INFORMATION
  Report Type: Not Available
  Country: US (occurrence: US)
  Receive Date: 20131016
  Receipt Date: 20131016
  Transmission Date: 20140711
  Serious: No
  Sender: FDA-Public Use
  Company Number: US-LUNDBECK-DKLU1091091

PATIENT
  Sex: 0

DRUGS (2)
  1. SABRIL (TABLET) [Suspect]
     Indication: PRODUCT USED FOR UNKNOWN INDICATION
  2. ANTIEPILEPTIC [Suspect]
     Indication: EPILEPSY

REACTIONS (1)
  - Psychotic behaviour [Unknown]
